FAERS Safety Report 4878035-4 (Version None)
Quarter: 2005Q4

REPORT INFORMATION
  Report Type: 
  Country: None (occurrence: None)
  Receive Date: 20051206
  Receipt Date: 20050906
  Transmission Date: 20060501
  Serious: No
  Sender: FDA-Public Use
  Company Number: USA0509107655

PATIENT
  Sex: Female

DRUGS (3)
  1. CYMBALTA [Suspect]
     Dosage: 60 MG
     Dates: start: 20050501, end: 20050701
  2. EFFEXOR [Concomitant]
  3. REMERON [Concomitant]

REACTIONS (6)
  - CHILLS [None]
  - DRUG INTERACTION [None]
  - HEADACHE [None]
  - MUSCLE SPASMS [None]
  - NAUSEA [None]
  - PYREXIA [None]
